FAERS Safety Report 8339326-8 (Version None)
Quarter: 2012Q2

REPORT INFORMATION
  Report Type: 
  Country: None (occurrence: None)
  Receive Date: 20120503
  Receipt Date: 20120425
  Transmission Date: 20120825
  Serious: Yes (Disabling)
  Sender: FDA-Public Use
  Company Number: AUR-APL-2012-01961

PATIENT
  Age: 91 Year
  Sex: Male

DRUGS (5)
  1. BISOPROLOL FUMARATE [Concomitant]
  2. FERROUS FUMARATE [Concomitant]
  3. FUROSEMIDE [Concomitant]
  4. WARFARIN SODIUM [Concomitant]
  5. LEVETIRACETAM [Suspect]
     Indication: CEREBRAL INFARCTION
     Dosage: 1500 MG (750 MG,2 IN 1 D),ORAL
     Route: 048
     Dates: end: 20120405

REACTIONS (1)
  - MYOCLONUS [None]
